FAERS Safety Report 7437781-9 (Version None)
Quarter: 2011Q2

REPORT INFORMATION
  Report Type: 
  Country: None (occurrence: None)
  Receive Date: 20110426
  Receipt Date: 20110414
  Transmission Date: 20111010
  Serious: Yes (Other)
  Sender: FDA-Public Use
  Company Number: CA-GENENTECH-316740

PATIENT
  Age: 28 Year
  Sex: Male

DRUGS (13)
  1. MEDICATION (UNK INGREDIENT) [Concomitant]
     Indication: RENAL FAILURE CHRONIC
     Dosage: 3 G, QD
     Route: 065
     Dates: start: 20070101
  2. ACETYLCARNITINE [Concomitant]
     Indication: RENAL FAILURE CHRONIC
     Dosage: 3 G, UNK
     Route: 065
     Dates: start: 20070101
  3. ALBUTEROL SULFATE AUTOHALER [Concomitant]
     Indication: PRODUCT USED FOR UNKNOWN INDICATION
  4. PRASTERONE [Concomitant]
     Indication: RENAL FAILURE CHRONIC
     Dosage: 100 MG, QD
     Route: 065
     Dates: start: 20070101
  5. MULTI-VITAMINS [Concomitant]
     Indication: PRODUCT USED FOR UNKNOWN INDICATION
     Dosage: 2 DF, QD
     Route: 065
  6. UBIDECARENONE [Concomitant]
     Indication: RENAL FAILURE CHRONIC
     Dosage: 200 MG, TID
     Route: 065
     Dates: start: 20070101
  7. THYROXINE [Concomitant]
     Indication: RENAL FAILURE CHRONIC
     Dosage: 100 A?G, QD
     Route: 065
     Dates: start: 20070101
  8. FLUTICASONE PROPIONATE [Concomitant]
     Indication: PRODUCT USED FOR UNKNOWN INDICATION
     Dosage: 125 A?G, BID
     Route: 065
  9. GLUTAMINE [Concomitant]
     Indication: RENAL FAILURE CHRONIC
     Dosage: 7 G, QD
     Route: 065
     Dates: start: 20070101
  10. SEVELAMER [Concomitant]
     Indication: PRODUCT USED FOR UNKNOWN INDICATION
     Dosage: 800 MG, UNK
     Route: 065
  11. CALCITRIOL [Concomitant]
     Indication: PRODUCT USED FOR UNKNOWN INDICATION
     Dosage: 0.5 A?G, 3/WEEK
     Route: 065
  12. SOMATROPIN [Suspect]
     Indication: RENAL FAILURE CHRONIC
     Dosage: 2 IU/KG, BID
     Route: 058
     Dates: start: 20070101
  13. OMEGA 3 FATTY ACIDS [Concomitant]
     Indication: RENAL FAILURE CHRONIC
     Dosage: 3 G, UNK
     Route: 065
     Dates: start: 20070101

REACTIONS (2)
  - TENDON RUPTURE [None]
  - HYPERPARATHYROIDISM SECONDARY [None]
